FAERS Safety Report 5518239-0 (Version None)
Quarter: 2007Q4

REPORT INFORMATION
  Report Type: 
  Country: None (occurrence: None)
  Receive Date: 20071115
  Receipt Date: 20071106
  Transmission Date: 20080405
  Serious: Yes (Life-Threatening, Congenital Anomaly)
  Sender: FDA-Public Use
  Company Number: A0640665A

PATIENT
  Sex: Male

DRUGS (5)
  1. PAXIL CR [Suspect]
     Indication: DRUG USE FOR UNKNOWN INDICATION
     Dosage: 25MG UNKNOWN
     Dates: start: 20050101
  2. PAROXETINE HCL [Suspect]
     Indication: DRUG USE FOR UNKNOWN INDICATION
     Dosage: 10MG UNKNOWN
     Dates: start: 20050331
  3. NATALCARE PLUS [Concomitant]
     Indication: PREGNANCY
     Dates: start: 20050501, end: 20051001
  4. TYLENOL COLD [Concomitant]
     Dosage: 2CAP AS REQUIRED
     Dates: start: 20010101
  5. IBUPROFEN [Concomitant]
     Dosage: 2CAP AS REQUIRED

REACTIONS (13)
  - ATRIAL SEPTAL DEFECT [None]
  - CHRONIC RESPIRATORY FAILURE [None]
  - COLITIS ISCHAEMIC [None]
  - CONGENITAL ANOMALY [None]
  - DRUG EXPOSURE DURING PREGNANCY [None]
  - HEART DISEASE CONGENITAL [None]
  - INJURY [None]
  - INTERRUPTION OF AORTIC ARCH [None]
  - LUNG DISORDER [None]
  - PAIN [None]
  - PATENT DUCTUS ARTERIOSUS [None]
  - PERSISTENT FOETAL CIRCULATION [None]
  - VENTRICULAR SEPTAL DEFECT [None]
